FAERS Safety Report 7218714-7 (Version None)
Quarter: 2011Q1

REPORT INFORMATION
  Report Type: 
  Country: None (occurrence: None)
  Receive Date: 20110110
  Receipt Date: 20101117
  Transmission Date: 20110831
  Serious: No
  Sender: FDA-Public Use
  Company Number: US-ABBOTT-10P-163-0686205-00

PATIENT
  Sex: Male

DRUGS (6)
  1. DILAUDID [Suspect]
     Indication: PAIN
  2. OXYCONTIN [Suspect]
     Indication: PAIN
  3. OXYCONTIN [Suspect]
     Indication: AMYOTROPHIC LATERAL SCLEROSIS
  4. VICODIN [Suspect]
     Indication: PAIN
  5. DILAUDID [Suspect]
     Indication: AMYOTROPHIC LATERAL SCLEROSIS
  6. VICODIN [Suspect]
     Indication: AMYOTROPHIC LATERAL SCLEROSIS

REACTIONS (1)
  - DRUG INEFFECTIVE [None]
